FAERS Safety Report 13361628 (Version 1)
Quarter: 2017Q1

REPORT INFORMATION
  Report Type: Report from Study
  Country: US (occurrence: US)
  Receive Date: 20170323
  Receipt Date: 20170323
  Transmission Date: 20170429
  Serious: Yes (Hospitalization, Other)
  Sender: FDA-Public Use
  Company Number: US-BIOGEN-2017BI00374045

PATIENT
  Sex: Male
  Weight: 73.09 kg

DRUGS (1)
  1. AVONEX [Suspect]
     Active Substance: INTERFERON BETA-1A
     Indication: MULTIPLE SCLEROSIS
     Route: 030
     Dates: start: 20160803

REACTIONS (3)
  - Paralysis [Recovered/Resolved]
  - Mobility decreased [Not Recovered/Not Resolved]
  - Knee operation [Not Recovered/Not Resolved]
